FAERS Safety Report 5511885-X (Version None)
Quarter: 2007Q4

REPORT INFORMATION
  Report Type: 
  Country: None (occurrence: None)
  Receive Date: 20071109
  Receipt Date: 20071030
  Transmission Date: 20080405
  Serious: Yes (Other)
  Sender: FDA-Public Use
  Company Number: FR-PFIZER INC-2007091443

PATIENT
  Age: 82 Year
  Sex: Female

DRUGS (4)
  1. LYRICA [Suspect]
  2. IMUREL [Concomitant]
  3. CARVEDILOL [Concomitant]
  4. HYDROCORTISON [Concomitant]

REACTIONS (2)
  - FACE OEDEMA [None]
  - GENERALISED OEDEMA [None]
